FAERS Safety Report 19705206 (Version 1)
Quarter: 2021Q3

REPORT INFORMATION
  Report Type: Spontaneous
  Country: US (occurrence: US)
  Receive Date: 20210816
  Receipt Date: 20210816
  Transmission Date: 20211014
  Serious: No
  Sender: FDA-Public Use
  Company Number: US-PFIZER INC-2020407572

PATIENT
  Age: 50 Year
  Sex: Female

DRUGS (2)
  1. RETACRIT [Suspect]
     Active Substance: EPOETIN ALFA-EPBX
     Dosage: 10000 IU/ML(10000 UNITS EVERY WEEK SUBCUTANEOUSLY 30 DAYS)
     Route: 058
  2. RETACRIT [Suspect]
     Active Substance: EPOETIN ALFA-EPBX
     Indication: HAEMOGLOBIN DECREASED
     Dosage: 10000, EVERY 15 DAYS

REACTIONS (3)
  - Off label use [Unknown]
  - Memory impairment [Unknown]
  - Product dose omission issue [Unknown]
